FAERS Safety Report 4743712-2 (Version None)
Quarter: 2005Q3

REPORT INFORMATION
  Report Type: 
  Country: None (occurrence: None)
  Receive Date: 20050809
  Receipt Date: 20050803
  Transmission Date: 20060218
  Serious: Yes (Death)
  Sender: FDA-Public Use
  Company Number: ITWYE882203AUG05

PATIENT
  Age: 68 Year
  Sex: Female

DRUGS (5)
  1. EFFEXOR [Suspect]
     Indication: CYCLOTHYMIC DISORDER
     Dates: start: 20000101, end: 20050728
  2. ANAFRANIL [Suspect]
     Indication: CYCLOTHYMIC DISORDER
     Dosage: 0.075 G 1X PER 1 DAY ORAL
     Route: 048
     Dates: start: 20000101, end: 20050730
  3. ZYPREXA [Suspect]
     Indication: CYCLOTHYMIC DISORDER
     Dosage: 10 MG 1X PER 1 DAY ORAL
     Route: 048
     Dates: start: 20000101, end: 20050721
  4. LEVOPRAID (SULPIRIDE) [Concomitant]
  5. LEXOTAN (BROMAZEPAM) [Concomitant]

REACTIONS (1)
  - HYPERTHERMIA MALIGNANT [None]
